FAERS Safety Report 10449627 (Version 1)
Quarter: 2014Q3

REPORT INFORMATION
  Report Type: Spontaneous
  Country: FR (occurrence: None)
  Receive Date: 20140910
  Receipt Date: 20140910
  Transmission Date: 20150326
  Serious: Yes (Hospitalization)
  Sender: FDA-Public Use
  Company Number: FK201403577

PATIENT
  Age: 51 Year
  Sex: Female

DRUGS (5)
  1. PROPOFOL FRESENIUS (NOT SPECIFIED) (PROPOFOL) (PROPOFOL) [Suspect]
     Active Substance: PROPOFOL
     Indication: INDUCTION OF ANAESTHESIA
     Dosage: INTRAVENOUS (NOT OTHERWISE SPECIFIED)
     Route: 042
     Dates: start: 20140117, end: 20140117
  2. SUFENTANIL MYLAN [Suspect]
     Active Substance: SUFENTANIL
     Indication: GENERAL ANAESTHESIA
     Route: 042
     Dates: start: 20140117, end: 20140117
  3. ZINNAT [Suspect]
     Active Substance: CEFUROXIME AXETIL
     Indication: GENERAL ANAESTHESIA
     Route: 042
     Dates: start: 20140117, end: 20140117
  4. LIDOCAINE ADRENALINE [Suspect]
     Active Substance: EPINEPHRINE\LIDOCAINE
     Indication: GENERAL ANAESTHESIA
     Dosage: INTRAVENOUS (NOT OTHERWISE)
  5. NIMBEX (NIMESULIDE) [Suspect]
     Active Substance: NIMESULIDE
     Indication: PRODUCT USED FOR UNKNOWN INDICATION

REACTIONS (1)
  - Anaphylactic shock [None]

NARRATIVE: CASE EVENT DATE: 20140117
